FAERS Safety Report 5035912-1 (Version None)
Quarter: 2006Q2

REPORT INFORMATION
  Report Type: 
  Country: None (occurrence: None)
  Receive Date: 20060526
  Receipt Date: 20060421
  Transmission Date: 20061013
  Serious: Yes (Hospitalization)
  Sender: FDA-Public Use
  Company Number: 224183

PATIENT
  Age: 41 Year
  Sex: Female
  Weight: 122.4 kg

DRUGS (3)
  1. RAPTIVA [Suspect]
     Indication: PSORIASIS
     Dosage: 1.2 MG,1/WEEK
     Dates: start: 20050628, end: 20051010
  2. CIPRO [Concomitant]
  3. SORIATANE [Concomitant]

REACTIONS (1)
  - PSORIASIS [None]
